FAERS Safety Report 16115600 (Version 1)
Quarter: 2019Q1

REPORT INFORMATION
  Report Type: Report from Study
  Country: None (occurrence: BR)
  Receive Date: 20190325
  Receipt Date: 20190325
  Transmission Date: 20190418
  Serious: Yes (Other)
  Sender: FDA-Public Use
  Company Number: BR-ABBVIE-19K-020-2715169-00

PATIENT
  Sex: Female
  Weight: 76 kg

DRUGS (3)
  1. HUMIRA [Suspect]
     Active Substance: ADALIMUMAB
     Indication: ANKYLOSING SPONDYLITIS
     Route: 058
     Dates: start: 20160512
  2. VALSARTAN. [Concomitant]
     Active Substance: VALSARTAN
     Indication: HYPERTENSION
  3. HUMIRA [Suspect]
     Active Substance: ADALIMUMAB
     Route: 058

REACTIONS (13)
  - Tooth loss [Recovered/Resolved]
  - Hepatic cirrhosis [Recovered/Resolved]
  - Pain in jaw [Recovered/Resolved]
  - Liver injury [Recovered/Resolved]
  - Inflammation [Recovered/Resolved]
  - Drug effect incomplete [Unknown]
  - Bone disorder [Recovered/Resolved]
  - Malaise [Unknown]
  - Liver disorder [Unknown]
  - Product storage error [Unknown]
  - Inflammation [Unknown]
  - Gastrointestinal pain [Not Recovered/Not Resolved]
  - Oesophagitis [Not Recovered/Not Resolved]

NARRATIVE: CASE EVENT DATE: 2018
